FAERS Safety Report 7757917-X (Version None)
Quarter: 2011Q3

REPORT INFORMATION
  Report Type: 
  Country: None (occurrence: None)
  Receive Date: 20110918
  Receipt Date: 20090316
  Transmission Date: 20111222
  Serious: Yes (Death, Hospitalization, Other)
  Sender: FDA-Public Use
  Company Number: PHHY2010TW25782

PATIENT
  Sex: Female

DRUGS (4)
  1. GLEEVEC [Suspect]
     Indication: GASTROINTESTINAL STROMAL TUMOUR
     Route: 048
     Dates: start: 20080829
  2. TASIGNA [Suspect]
     Indication: GASTROINTESTINAL STROMAL TUMOUR
     Dosage: 800 MG, DAILY
     Route: 048
  3. SUTENT [Suspect]
     Indication: GASTROINTESTINAL STROMAL TUMOUR
     Dosage: 2 DF, QD
     Route: 048
     Dates: start: 20100101
  4. SUTENT [Suspect]
     Dosage: 3 DF, UNK

REACTIONS (4)
  - ASTHENIA [None]
  - DEATH [None]
  - ABDOMINAL PAIN [None]
  - ASCITES [None]
